FAERS Safety Report 11547809 (Version 1)
Quarter: 2015Q3

REPORT INFORMATION
  Report Type: Spontaneous
  Country: US (occurrence: US)
  Receive Date: 20150924
  Receipt Date: 20150924
  Transmission Date: 20151125
  Serious: Yes (Hospitalization)
  Sender: FDA-Public Use
  Company Number: US-UNICHEM LABORATORIES LIMITED-UCM201509-000831

PATIENT
  Age: 17 Year
  Sex: Female

DRUGS (2)
  1. CLONIDINE HCL [Suspect]
     Active Substance: CLONIDINE HYDROCHLORIDE
  2. BUPROPION. [Suspect]
     Active Substance: BUPROPION

REACTIONS (5)
  - Miosis [Recovered/Resolved]
  - Intentional overdose [Unknown]
  - Somnolence [Recovered/Resolved]
  - Unmasking of previously unidentified disease [Unknown]
  - Sinus bradycardia [Recovered/Resolved]
